FAERS Safety Report 22896578 (Version 3)
Quarter: 2023Q4

REPORT INFORMATION
  Report Type: Spontaneous
  Country: DE (occurrence: DE)
  Receive Date: 20230901
  Receipt Date: 20231123
  Transmission Date: 20240110
  Serious: Yes (Life-Threatening, Hospitalization)
  Sender: FDA-Public Use
  Company Number: DE-DCGMA-23201746

PATIENT
  Age: 76 Year
  Sex: Male

DRUGS (1)
  1. RITUXIMAB [Suspect]
     Active Substance: RITUXIMAB
     Indication: Lymphoplasmacytoid lymphoma/immunocytoma
     Dosage: UNK
     Dates: start: 20230621, end: 20230623

REACTIONS (3)
  - Progressive multifocal leukoencephalopathy [Not Recovered/Not Resolved]
  - Dysarthria [Not Recovered/Not Resolved]
  - Paresis [Not Recovered/Not Resolved]

NARRATIVE: CASE EVENT DATE: 20230714
